FAERS Safety Report 5211525-3 (Version None)
Quarter: 2007Q1

REPORT INFORMATION
  Report Type: 
  Country: None (occurrence: None)
  Receive Date: 20070117
  Receipt Date: 20070108
  Transmission Date: 20070707
  Serious: Yes (Hospitalization)
  Sender: FDA-Public Use
  Company Number: CN-ABBOTT-06P-035-0353642-00

PATIENT
  Sex: Female

DRUGS (6)
  1. DEPAKENE [Suspect]
     Indication: EPILEPSY
     Route: 048
     Dates: start: 20061021, end: 20061106
  2. PIPERACILLIN/SULBACTAM [Suspect]
     Indication: ANTI-INFECTIVE THERAPY
     Route: 042
  3. FAMOTIDINE [Concomitant]
     Indication: ANTACID THERAPY
     Route: 042
  4. AMBROXOL [Concomitant]
     Indication: ANTITUSSIVE THERAPY
     Route: 048
  5. METOPROLOL SUCCINATE [Concomitant]
     Indication: DRUG USE FOR UNKNOWN INDICATION
     Route: 048
  6. CEFMENOXIME [Concomitant]
     Indication: ANTI-INFECTIVE THERAPY
     Route: 042

REACTIONS (4)
  - BLOOD FIBRINOGEN DECREASED [None]
  - CEREBRAL HAEMORRHAGE [None]
  - FIBRIN D DIMER INCREASED [None]
  - PLATELET COUNT DECREASED [None]
